FAERS Safety Report 13989611 (Version 1)
Quarter: 2017Q3

REPORT INFORMATION
  Report Type: Report from Study
  Country: JP (occurrence: JP)
  Receive Date: 20170920
  Receipt Date: 20170920
  Transmission Date: 20171128
  Serious: Yes (Death, Other)
  Sender: FDA-Public Use
  Company Number: JP-009507513-1709JPN001737J

PATIENT
  Age: 87 Year
  Sex: Male
  Weight: 48 kg

DRUGS (12)
  1. GASTER [Concomitant]
     Active Substance: FAMOTIDINE
     Indication: PROPHYLAXIS
     Dosage: 20 MG, BID
     Route: 051
     Dates: start: 20161204, end: 20161207
  2. GLUCOSE BAXTER [Concomitant]
     Active Substance: DEXTROSE
     Indication: MEDICATION DILUTION
     Dosage: 500 ML, QD
     Route: 051
     Dates: start: 20161203, end: 20161207
  3. ASPARA POTASSIUM [Concomitant]
     Active Substance: POTASSIUM ASPARTATE
     Dosage: 20 ML, BID
     Route: 051
     Dates: start: 20161203, end: 20161208
  4. VANCOMYCIN [Concomitant]
     Active Substance: VANCOMYCIN
     Indication: STAPHYLOCOCCAL SEPSIS
     Dosage: 1000 MG, UNK
     Route: 041
     Dates: start: 20161121, end: 20161202
  5. FAMOTIDINE. [Concomitant]
     Active Substance: FAMOTIDINE
     Indication: PROPHYLAXIS
     Dosage: 20 MG, BID
     Route: 048
     Dates: start: 20161128, end: 20161204
  6. INTRALIPOS [Concomitant]
     Active Substance: SOYBEAN OIL
     Indication: NUTRITIONAL SUPPLEMENTATION
     Dosage: 100 ML, QD
     Route: 051
     Dates: start: 20161126, end: 20161207
  7. BFLUID [Concomitant]
     Active Substance: AMINO ACIDS\DEXTROSE\ELECTROLYTES NOS\VITAMINS
     Dosage: 500 ML, TID
     Route: 051
     Dates: start: 20161201, end: 20161207
  8. CUBICIN [Suspect]
     Active Substance: DAPTOMYCIN
     Indication: STAPHYLOCOCCAL SEPSIS
     Dosage: 6 MG/KG, QD
     Route: 041
     Dates: start: 20161203, end: 20161207
  9. CLOPIDOGREL [Concomitant]
     Active Substance: CLOPIDOGREL BISULFATE
     Dosage: 75 MG, QD
     Route: 048
     Dates: start: 20161121, end: 20161208
  10. DOPAMINE [Concomitant]
     Active Substance: DOPAMINE\DOPAMINE HYDROCHLORIDE
     Dosage: 200 MG, Q4D
     Route: 051
     Dates: start: 20161203, end: 20161206
  11. BFLUID [Concomitant]
     Active Substance: AMINO ACIDS\DEXTROSE\ELECTROLYTES NOS\VITAMINS
     Indication: FLUID REPLACEMENT
     Dosage: 500 ML, BID
     Route: 051
     Dates: start: 20161126, end: 20161130
  12. DOPAMINE [Concomitant]
     Active Substance: DOPAMINE\DOPAMINE HYDROCHLORIDE
     Dosage: 200 MG, QOD
     Route: 051
     Dates: start: 20161207, end: 20161208

REACTIONS (2)
  - Sepsis [Fatal]
  - Drug ineffective [Unknown]

NARRATIVE: CASE EVENT DATE: 20161208
